FAERS Safety Report 8814553 (Version 1)
Quarter: 2012Q4

REPORT INFORMATION
  Report Type: 
  Country: US (occurrence: US)
  Receive Date: 20120928
  Receipt Date: 20120928
  Transmission Date: 20130627
  Serious: Yes (Death, Life-Threatening, Hospitalization, Other)
  Sender: FDA-Public Use
  Company Number: US-JNJFOC-20120909660

PATIENT

DRUGS (16)
  1. ABCIXIMAB [Suspect]
     Indication: MYOCARDIAL INFARCTION
     Dosage: maximum 10ug/min
     Route: 042
  2. ABCIXIMAB [Suspect]
     Indication: MYOCARDIAL INFARCTION
     Dosage: bolus
     Route: 042
  3. ABCIXIMAB [Suspect]
     Indication: PERCUTANEOUS CORONARY INTERVENTION
     Dosage: maximum 10ug/min
     Route: 042
  4. ABCIXIMAB [Suspect]
     Indication: PERCUTANEOUS CORONARY INTERVENTION
     Dosage: bolus
     Route: 042
  5. HEPARIN [Suspect]
     Indication: MYOCARDIAL INFARCTION
     Dosage: bolus
     Route: 042
  6. HEPARIN [Suspect]
     Indication: PERCUTANEOUS CORONARY INTERVENTION
     Dosage: bolus
     Route: 042
  7. CLOPIDOGREL [Suspect]
     Indication: MYOCARDIAL INFARCTION
     Route: 065
  8. CLOPIDOGREL [Suspect]
     Indication: PERCUTANEOUS CORONARY INTERVENTION
     Route: 065
  9. ASPIRIN [Suspect]
     Indication: MYOCARDIAL INFARCTION
     Dosage: 100 to 324mg orally
     Route: 048
  10. ASPIRIN [Suspect]
     Indication: PERCUTANEOUS CORONARY INTERVENTION
     Dosage: 100 to 324mg orally
     Route: 048
  11. UNSPECIFIED [Suspect]
     Indication: MYOCARDIAL INFARCTION
     Route: 065
  12. UNSPECIFIED [Suspect]
     Indication: PERCUTANEOUS CORONARY INTERVENTION
     Route: 065
  13. ASPIRIN [Suspect]
     Indication: MYOCARDIAL INFARCTION
     Dosage: 500 mg intravenously
     Route: 042
  14. ASPIRIN [Suspect]
     Indication: PERCUTANEOUS CORONARY INTERVENTION
     Dosage: 500 mg intravenously
     Route: 042
  15. TICLOPIDINE [Suspect]
     Indication: MYOCARDIAL INFARCTION
     Route: 065
  16. TICLOPIDINE [Suspect]
     Indication: PERCUTANEOUS CORONARY INTERVENTION
     Route: 065

REACTIONS (9)
  - Ill-defined disorder [Fatal]
  - Cardiac death [Fatal]
  - Thrombocytopenia [Unknown]
  - Haemorrhage [Unknown]
  - Thrombosis in device [Unknown]
  - MINOR BLEEDING [Unknown]
  - Infarction [Unknown]
  - Cerebrovascular accident [Unknown]
  - Haemorrhage [Unknown]
